FAERS Safety Report 5688678-6 (Version None)
Quarter: 2008Q1

REPORT INFORMATION
  Report Type: 
  Country: None (occurrence: None)
  Receive Date: 20080331
  Receipt Date: 20080324
  Transmission Date: 20080703
  Serious: Yes (Death, Other)
  Sender: FDA-Public Use
  Company Number: PHHY2008JP03190

PATIENT
  Age: 68 Year
  Sex: Female
  Weight: 42 kg

DRUGS (4)
  1. VOLTAREN [Suspect]
     Indication: TOOTHACHE
     Dosage: 75 MG / DAY
     Route: 048
     Dates: start: 20080213, end: 20080217
  2. VOLTAREN [Suspect]
     Dosage: 50 MG / DAY
     Route: 048
     Dates: start: 20080226, end: 20080228
  3. VALERIN [Suspect]
     Indication: EPILEPSY
     Dosage: 1200 MG / DAY
     Route: 048
     Dates: start: 20040107, end: 20070526
  4. VALERIN [Suspect]
     Dosage: 300 MG ONE TIME AND 600 MG AT ANOTHER
     Route: 048
     Dates: start: 20070628, end: 20080306

REACTIONS (31)
  - ANAEMIA [None]
  - BACTERAEMIA [None]
  - BLOOD CREATINE PHOSPHOKINASE INCREASED [None]
  - BLOOD CREATININE INCREASED [None]
  - BLOOD LACTATE DEHYDROGENASE INCREASED [None]
  - BLOOD UREA INCREASED [None]
  - BLOOD URINE PRESENT [None]
  - C-REACTIVE PROTEIN INCREASED [None]
  - CARDIAC ARREST [None]
  - CEREBRAL ATROPHY [None]
  - CEREBRAL INFARCTION [None]
  - COMA [None]
  - DEPRESSED LEVEL OF CONSCIOUSNESS [None]
  - DYSLALIA [None]
  - MOUTH HAEMORRHAGE [None]
  - MOVEMENT DISORDER [None]
  - MYOGLOBIN BLOOD INCREASED [None]
  - MYOGLOBIN URINE PRESENT [None]
  - NERVOUS SYSTEM DISORDER [None]
  - NUCLEAR MAGNETIC RESONANCE IMAGING ABNORMAL [None]
  - PALLOR [None]
  - RENAL FAILURE ACUTE [None]
  - RENAL FUNCTION TEST ABNORMAL [None]
  - RENAL IMPAIRMENT [None]
  - RESPIRATORY ARREST [None]
  - RESPIRATORY FAILURE [None]
  - RHABDOMYOLYSIS [None]
  - SEPTIC SHOCK [None]
  - SIMPLE PARTIAL SEIZURES [None]
  - URINE PROTEIN, QUANTITATIVE [None]
  - WHITE BLOOD CELL COUNT INCREASED [None]
